FAERS Safety Report 15697060 (Version 1)
Quarter: 2018Q4

REPORT INFORMATION
  Report Type: Spontaneous
  Country: US (occurrence: US)
  Receive Date: 20181206
  Receipt Date: 20181206
  Transmission Date: 20190205
  Serious: Yes (Other)
  Sender: FDA-Public Use
  Company Number: US-ABBVIE-18K-163-2572387-00

PATIENT
  Sex: Female

DRUGS (5)
  1. VENETOCLAX. [Suspect]
     Active Substance: VENETOCLAX
     Dosage: WEEK 3
     Route: 065
     Dates: start: 2018, end: 2018
  2. VENETOCLAX. [Suspect]
     Active Substance: VENETOCLAX
     Dosage: WEEK 4
     Route: 065
     Dates: start: 2018, end: 2018
  3. VENETOCLAX. [Suspect]
     Active Substance: VENETOCLAX
     Indication: ACUTE MYELOID LEUKAEMIA
     Dosage: WEEK 2
     Route: 065
     Dates: start: 2018, end: 2018
  4. VENETOCLAX. [Suspect]
     Active Substance: VENETOCLAX
     Indication: MYELODYSPLASTIC SYNDROME
     Dosage: WEEK 1
     Route: 065
     Dates: start: 201805, end: 2018
  5. VENETOCLAX. [Suspect]
     Active Substance: VENETOCLAX
     Route: 065
     Dates: start: 2018

REACTIONS (3)
  - Intentional product use issue [Unknown]
  - Myelodysplastic syndrome [Unknown]
  - Acute myeloid leukaemia [Unknown]

NARRATIVE: CASE EVENT DATE: 2018
